FAERS Safety Report 14670339 (Version 2)
Quarter: 2018Q2

REPORT INFORMATION
  Report Type: Spontaneous
  Country: US (occurrence: US)
  Receive Date: 20180322
  Receipt Date: 20180622
  Transmission Date: 20180711
  Serious: No
  Sender: FDA-Public Use
  Company Number: US-ADAMAS PHARMACEUTICALS-2018ADA00084

PATIENT
  Age: 71 Year
  Sex: Female

DRUGS (13)
  1. GOCOVRI [Suspect]
     Active Substance: AMANTADINE
     Dosage: 137 MG, 1X/DAY
     Route: 048
     Dates: start: 2018, end: 2018
  2. BUPROPION SR [Concomitant]
     Active Substance: BUPROPION HYDROCHLORIDE
  3. XARELTO [Concomitant]
     Active Substance: RIVAROXABAN
  4. VITAMIN D [Concomitant]
     Active Substance: CHOLECALCIFEROL
  5. CLOTRIMAZOLE AND BETAMETHASONE DIPROPIONATE [Concomitant]
     Active Substance: BETAMETHASONE\BETAMETHASONE DIPROPIONATE\CLOTRIMAZOLE
  6. GOCOVRI [Suspect]
     Active Substance: AMANTADINE
     Indication: DYSKINESIA
     Dosage: 137 MG, 1X/DAY
     Route: 048
     Dates: start: 20180123, end: 20180129
  7. CARB/LEVO [Concomitant]
     Active Substance: CARBIDOPA\LEVODOPA
  8. VITAMIN C [Concomitant]
     Active Substance: ASCORBIC ACID
  9. BUPROPION. [Concomitant]
     Active Substance: BUPROPION
  10. AMOXICILLIN. [Concomitant]
     Active Substance: AMOXICILLIN
     Dosage: UNK
     Dates: start: 20180127, end: 20180204
  11. FUROSEMIDE. [Concomitant]
     Active Substance: FUROSEMIDE
  12. COENZYME Q10 [Concomitant]
     Active Substance: UBIDECARENONE
  13. GOCOVRI [Suspect]
     Active Substance: AMANTADINE
     Dosage: 274 MG, 1X/DAY
     Route: 048
     Dates: start: 20180130, end: 2018

REACTIONS (3)
  - Diplopia [Not Recovered/Not Resolved]
  - Gait disturbance [Not Recovered/Not Resolved]
  - Oedema peripheral [Unknown]

NARRATIVE: CASE EVENT DATE: 2018
